FAERS Safety Report 9765187 (Version 1)
Quarter: 2013Q4

REPORT INFORMATION
  Report Type: Spontaneous
  Country: US (occurrence: US)
  Receive Date: 20131217
  Receipt Date: 20131217
  Transmission Date: 20140711
  Serious: No
  Sender: FDA-Public Use
  Company Number: US-GLAXOSMITHKLINE-A1017295A

PATIENT
  Age: 36 Year
  Sex: Male

DRUGS (5)
  1. SORIATANE [Suspect]
     Indication: PSORIASIS
     Dosage: 25MG PER DAY
     Route: 048
     Dates: start: 201303
  2. ISONIAZID [Concomitant]
  3. LANTUS [Concomitant]
  4. REGULAR INSULIN [Concomitant]
  5. LISINOPRIL [Concomitant]

REACTIONS (5)
  - Psoriasis [Unknown]
  - Pruritus [Unknown]
  - Skin ulcer [Unknown]
  - Psoriasis [Unknown]
  - Erythema [Unknown]
